FAERS Safety Report 6397477-1 (Version None)
Quarter: 2009Q4

REPORT INFORMATION
  Report Type: 
  Country: None (occurrence: None)
  Receive Date: 20091012
  Receipt Date: 20091002
  Transmission Date: 20100525
  Serious: Yes (Hospitalization)
  Sender: FDA-Public Use
  Company Number: JP-ASTRAZENECA-2009SE18850

PATIENT
  Age: 70 Year
  Sex: Female

DRUGS (3)
  1. SEROQUEL [Suspect]
     Indication: SCHIZOPHRENIA
     Route: 048
     Dates: end: 20090918
  2. SEROQUEL [Suspect]
     Route: 048
     Dates: start: 20090919
  3. SEROQUEL [Suspect]
     Route: 048

REACTIONS (1)
  - LEUKOPENIA [None]
